FAERS Safety Report 7551461-0 (Version None)
Quarter: 2011Q2

REPORT INFORMATION
  Report Type: 
  Country: None (occurrence: None)
  Receive Date: 20110616
  Receipt Date: 20110601
  Transmission Date: 20111010
  Serious: Yes (Other)
  Sender: FDA-Public Use
  Company Number: NO-JNJFOC-20110601455

PATIENT
  Sex: Female

DRUGS (10)
  1. ZOFRAN [Concomitant]
  2. NOZINAN [Concomitant]
  3. LOPERAMIDE [Concomitant]
  4. INFLIXIMAB [Suspect]
     Indication: CROHN'S DISEASE
     Route: 051
     Dates: start: 20060101, end: 20070101
  5. CALCIGRAN FORTE [Concomitant]
  6. EFFEXOR [Concomitant]
  7. AFIPRAN [Concomitant]
  8. ADALIMUMAB [Suspect]
     Indication: CROHN'S DISEASE
     Route: 051
     Dates: start: 20070101, end: 20080101
  9. MAGNESIUM SULFATE [Concomitant]
  10. PARACET [Concomitant]

REACTIONS (1)
  - BLADDER CANCER [None]
